FAERS Safety Report 5042676-4 (Version None)
Quarter: 2006Q3

REPORT INFORMATION
  Report Type: 
  Country: None (occurrence: None)
  Receive Date: 20060705
  Receipt Date: 20060414
  Transmission Date: 20061208
  Serious: Yes (Other)
  Sender: FDA-Public Use
  Company Number: US-SANOFI-SYNTHELABO-A03200602366

PATIENT
  Sex: Male
  Weight: 130.6 kg

DRUGS (1)
  1. AMBIEN [Suspect]
     Indication: INSOMNIA
     Route: 048

REACTIONS (9)
  - ASTHENIA [None]
  - COORDINATION ABNORMAL [None]
  - DEPENDENCE [None]
  - DISORIENTATION [None]
  - DRUG INEFFECTIVE [None]
  - EATING DISORDER [None]
  - MYOCARDIAL INFARCTION [None]
  - SOMNOLENCE [None]
  - WEIGHT INCREASED [None]
